FAERS Safety Report 9387280 (Version 1)
Quarter: 2013Q3

REPORT INFORMATION
  Report Type: Spontaneous
  Country: US (occurrence: None)
  Receive Date: 20130703
  Receipt Date: 20130703
  Transmission Date: 20140515
  Serious: Yes (Hospitalization)
  Sender: FDA-Public Use
  Company Number: None

PATIENT
  Age: 44 Year
  Sex: Female
  Weight: 81.65 kg

DRUGS (1)
  1. OXYCARBAZEPINE [Suspect]
     Indication: STATUS EPILEPTICUS
     Dosage: 3 TAB QAM  3 TABS QPM ,  SINCE 15 Y/O
     Route: 048

REACTIONS (1)
  - Drug ineffective [None]
